FAERS Safety Report 7944746-7 (Version None)
Quarter: 2011Q4

REPORT INFORMATION
  Report Type: 
  Country: None (occurrence: None)
  Receive Date: 20111129
  Receipt Date: 20111122
  Transmission Date: 20120403
  Serious: Yes (Other)
  Sender: FDA-Public Use
  Company Number: US-JNJFOC-20111111133

PATIENT
  Sex: Male
  Weight: 61.24 kg

DRUGS (12)
  1. PANCREAZE [Suspect]
     Indication: PANCREATIC CARCINOMA
     Route: 048
     Dates: start: 20100101
  2. ISOSORBIDE MONONITRATE [Concomitant]
     Indication: CARDIAC DISORDER
     Route: 048
  3. LIPITOR [Concomitant]
     Indication: CARDIAC DISORDER
     Route: 065
  4. ASPIRIN [Concomitant]
     Indication: PRODUCT USED FOR UNKNOWN INDICATION
     Route: 048
  5. HYDRALAZINE HCL [Concomitant]
     Indication: CARDIAC DISORDER
     Route: 048
  6. PLAVIX [Concomitant]
     Indication: PRODUCT USED FOR UNKNOWN INDICATION
     Route: 048
     Dates: end: 20111118
  7. CLONIDINE [Concomitant]
     Indication: PRODUCT USED FOR UNKNOWN INDICATION
     Route: 048
  8. ZEMPLAR [Concomitant]
     Indication: CARDIAC DISORDER
     Route: 048
  9. DILANTIN [Concomitant]
     Dosage: IN THE EVENING
     Route: 048
  10. TOPROL-XL [Concomitant]
     Indication: CARDIAC DISORDER
     Route: 048
  11. NORVASC [Concomitant]
     Indication: CARDIAC DISORDER
     Route: 048
  12. DILANTIN [Concomitant]
     Indication: EPILEPSY
     Route: 048

REACTIONS (2)
  - RECTAL HAEMORRHAGE [None]
  - POLYP [None]
